FAERS Safety Report 10685478 (Version 7)
Quarter: 2019Q1

REPORT INFORMATION
  Report Type: Spontaneous
  Country: DE (occurrence: DE)
  Receive Date: 20141231
  Receipt Date: 20190213
  Transmission Date: 20190417
  Serious: Yes (Life-Threatening, Hospitalization, Other)
  Sender: FDA-Public Use
  Company Number: DE-PFIZER INC-2014357658

PATIENT
  Age: 19 Year
  Sex: Male
  Weight: 90 kg

DRUGS (4)
  1. PREGABALIN. [Suspect]
     Active Substance: PREGABALIN
     Indication: FOCAL DYSCOGNITIVE SEIZURES
     Dosage: 150 MG, DAILY
     Route: 048
     Dates: start: 201210, end: 20130218
  2. TIAPRIDE [Concomitant]
     Active Substance: TIAPRIDE
     Indication: DYSKINESIA
     Dosage: UNK
  3. IBUPROFEN. [Concomitant]
     Active Substance: IBUPROFEN
     Dosage: UNK
  4. ASPIRIN. [Concomitant]
     Active Substance: ASPIRIN
     Dosage: UNK

REACTIONS (6)
  - Apathy [Recovered/Resolved]
  - Depression [Recovered/Resolved]
  - Suicidal ideation [Recovered/Resolved]
  - Suicide attempt [Recovered/Resolved]
  - Anxiety [Recovered/Resolved]
  - Sleep disorder [Recovered/Resolved]

NARRATIVE: CASE EVENT DATE: 201212
